FAERS Safety Report 6747752-3 (Version None)
Quarter: 2010Q2

REPORT INFORMATION
  Report Type: 
  Country: None (occurrence: None)
  Receive Date: 20100528
  Receipt Date: 20100518
  Transmission Date: 20101027
  Serious: Yes (Hospitalization, Other)
  Sender: FDA-Public Use
  Company Number: US-ABBOTT-10P-163-0640943-00

PATIENT
  Sex: Female

DRUGS (9)
  1. HUMIRA [Suspect]
     Indication: CROHN'S DISEASE
     Dates: start: 20100123, end: 20100213
  2. HUMIRA [Suspect]
     Indication: COLITIS ULCERATIVE
     Dates: start: 20100320, end: 20100320
  3. HUMIRA [Suspect]
     Dates: start: 20100424
  4. BEE POLLEN [Suspect]
     Indication: PHYTOTHERAPY
     Route: 048
  5. AZATHIOPRINE SODIUM [Concomitant]
     Indication: CROHN'S DISEASE
  6. AZATHIOPRINE SODIUM [Concomitant]
     Indication: COLITIS ULCERATIVE
  7. HYDROCHLOROTHIAZIDE [Concomitant]
     Indication: HYPERTENSION
  8. LEVOTHYROXINE SODIUM [Concomitant]
     Indication: HYPOTHYROIDISM
  9. NEXIUM [Concomitant]
     Indication: CROHN'S DISEASE

REACTIONS (9)
  - EAR INFECTION [None]
  - EYE INFECTION [None]
  - EYE SWELLING [None]
  - HEART VALVE CALCIFICATION [None]
  - ORAL HERPES [None]
  - PULSE ABSENT [None]
  - RESPIRATORY ARREST [None]
  - SINUSITIS [None]
  - UNRESPONSIVE TO STIMULI [None]
